FAERS Safety Report 5170583-5 (Version None)
Quarter: 2006Q4

REPORT INFORMATION
  Report Type: 
  Country: None (occurrence: None)
  Receive Date: 20061205
  Receipt Date: 20061120
  Transmission Date: 20070319
  Serious: Yes (Hospitalization)
  Sender: FDA-Public Use
  Company Number: 2006106642

PATIENT
  Age: 64 Year
  Sex: Male

DRUGS (4)
  1. AZULFIDINE EN-TABS [Suspect]
     Indication: RHEUMATOID ARTHRITIS
     Dosage: 1 GRAM (500 MG, 2 IN 1 D), ORAL
     Route: 048
  2. MUCOSTA            (REBAMIPIDE) [Concomitant]
  3. ETODOLAC [Concomitant]
  4. PREDNISOLONE [Concomitant]

REACTIONS (4)
  - AGRANULOCYTOSIS [None]
  - ARTHRALGIA [None]
  - MALAISE [None]
  - PYREXIA [None]
